FAERS Safety Report 11122048 (Version 1)
Quarter: 2015Q2

REPORT INFORMATION
  Report Type: Spontaneous
  Country: FR (occurrence: FR)
  Receive Date: 20150519
  Receipt Date: 20150519
  Transmission Date: 20150821
  Serious: Yes (Hospitalization, Other)
  Sender: FDA-Public Use
  Company Number: FR-JNJFOC-20150504306

PATIENT
  Age: 72 Year
  Sex: Male

DRUGS (5)
  1. STELARA [Suspect]
     Active Substance: USTEKINUMAB
     Indication: PSORIASIS
     Route: 058
  2. LITHIUM. [Concomitant]
     Active Substance: LITHIUM
     Indication: BIPOLAR DISORDER
     Route: 065
  3. STELARA [Suspect]
     Active Substance: USTEKINUMAB
     Indication: PSORIASIS
     Route: 058
     Dates: start: 20150102
  4. INSULIN [Concomitant]
     Active Substance: INSULIN NOS
     Indication: DIABETES MELLITUS
  5. SEROPLEX [Suspect]
     Active Substance: ESCITALOPRAM OXALATE
     Indication: PRODUCT USED FOR UNKNOWN INDICATION
     Route: 065
     Dates: start: 20150120, end: 20150126

REACTIONS (15)
  - Hypertension [Recovered/Resolved]
  - Agitation [Recovered/Resolved]
  - Extrapyramidal disorder [Recovered/Resolved]
  - Acute kidney injury [Recovered/Resolved]
  - Urinary retention [Recovered/Resolved]
  - Benign prostatic hyperplasia [Recovered/Resolved]
  - Inappropriate schedule of drug administration [Unknown]
  - Myalgia [Recovered/Resolved]
  - Insomnia [Recovered/Resolved]
  - General physical condition abnormal [Recovered/Resolved]
  - Hypercalcaemia [Recovered/Resolved]
  - Hyperhidrosis [Recovered/Resolved]
  - Atrophy [Recovered/Resolved]
  - Abnormal behaviour [Recovered/Resolved]
  - Pyrexia [Recovered/Resolved]

NARRATIVE: CASE EVENT DATE: 20150123
